FAERS Safety Report 8721564 (Version 2)
Quarter: 2012Q4

REPORT INFORMATION
  Report Type: Report from Study
  Country: DE (occurrence: DE)
  Receive Date: 20120814
  Receipt Date: 20121018
  Transmission Date: 20130627
  Serious: Yes (Other)
  Sender: FDA-Public Use
  Company Number: DE-BIOGENIDEC-2012BI029861

PATIENT
  Age: 41 Year
  Sex: Female

DRUGS (3)
  1. TYSABRI [Suspect]
     Indication: RELAPSING-REMITTING MULTIPLE SCLEROSIS
     Route: 042
     Dates: start: 20090904
  2. PAROXETIN [Concomitant]
     Indication: DEPRESSION
     Route: 048
     Dates: start: 20060606
  3. DOXEPIN [Concomitant]
     Indication: DEPRESSION

REACTIONS (1)
  - Cholecystitis [Recovered/Resolved]
